FAERS Safety Report 5370353-9 (Version None)
Quarter: 2007Q2

REPORT INFORMATION
  Report Type: 
  Country: None (occurrence: None)
  Receive Date: 20070626
  Receipt Date: 20061129
  Transmission Date: 20071010
  Serious: No
  Sender: FDA-Public Use
  Company Number: US-AMGEN-US199603

PATIENT
  Sex: Male
  Weight: 114 kg

DRUGS (17)
  1. ARANESP [Suspect]
     Indication: ANAEMIA
     Route: 058
     Dates: start: 20060405, end: 20060815
  2. ARANESP [Suspect]
     Route: 058
     Dates: start: 20060815, end: 20061108
  3. PEG-INTRON [Suspect]
     Route: 065
     Dates: start: 20051201, end: 20051201
  4. RIBAVIRIN [Suspect]
     Dates: start: 20051201, end: 20061201
  5. PROCRIT [Suspect]
     Indication: ANAEMIA
     Route: 058
     Dates: start: 20060120, end: 20060309
  6. PROCRIT [Suspect]
     Route: 058
     Dates: start: 20060309, end: 20060405
  7. COZAAR [Concomitant]
  8. INSULIN HUMAN [Concomitant]
  9. INSULIN LISPRO [Concomitant]
  10. LEVOTHYROXINE SODIUM [Concomitant]
  11. DOXAZOSIN MESYLATE [Concomitant]
  12. TESTOSTERONE [Concomitant]
  13. PAXIL [Concomitant]
  14. NEXIUM [Concomitant]
  15. COUMADIN [Concomitant]
  16. DARVON [Concomitant]
  17. TRAMADOL HCL [Concomitant]

REACTIONS (2)
  - RETICULOCYTE COUNT DECREASED [None]
  - THERAPEUTIC RESPONSE DECREASED [None]
